FAERS Safety Report 16254123 (Version 1)
Quarter: 2019Q2

REPORT INFORMATION
  Report Type: Report from Study
  Country: CN (occurrence: CN)
  Receive Date: 20190430
  Receipt Date: 20190430
  Transmission Date: 20190711
  Serious: Yes (Other)
  Sender: FDA-Public Use
  Company Number: CN-ROCHE-2306641

PATIENT

DRUGS (3)
  1. FUZI LIZHONG [Suspect]
     Active Substance: HERBALS
     Indication: GASTRIC CANCER
     Dosage: INGREDIENTS BOILED IN WATER TO 200 ML,1 DOSE/DAY, DIVIDED INTO TWO DOSES FOR ADMINISTRATION IN THE M
     Route: 065
  2. OXALIPLATIN. [Suspect]
     Active Substance: OXALIPLATIN
     Indication: GASTRIC CANCER
     Route: 041
  3. CAPECITABINE. [Suspect]
     Active Substance: CAPECITABINE
     Indication: GASTRIC CANCER
     Route: 048

REACTIONS (6)
  - Phlebitis [Unknown]
  - Renal impairment [Unknown]
  - Bone marrow failure [Unknown]
  - Hepatic function abnormal [Unknown]
  - Vomiting [Unknown]
  - Nausea [Unknown]
